FAERS Safety Report 5411367-X (Version None)
Quarter: 2007Q3

REPORT INFORMATION
  Report Type: 
  Country: None (occurrence: None)
  Receive Date: 20070810
  Receipt Date: 20070726
  Transmission Date: 20080115
  Serious: Yes (Hospitalization)
  Sender: FDA-Public Use
  Company Number: JP-ASTRAZENECA-2007AP03890

PATIENT
  Age: 23965 Day
  Sex: Female

DRUGS (3)
  1. SEROQUEL [Suspect]
     Indication: BIPOLAR DISORDER
     Route: 048
     Dates: start: 20070509, end: 20070614
  2. NIVADIL [Concomitant]
     Indication: HYPERTENSION
     Route: 048
     Dates: start: 20070521, end: 20070607
  3. DEPAKENE [Concomitant]
     Indication: BIPOLAR DISORDER
     Route: 048
     Dates: start: 20070509, end: 20070607

REACTIONS (2)
  - DRUG ERUPTION [None]
  - LIVER DISORDER [None]
